FAERS Safety Report 22002235 (Version 1)
Quarter: 2023Q1

REPORT INFORMATION
  Report Type: Report from Study
  Country: PL (occurrence: PL)
  Receive Date: 20230217
  Receipt Date: 20230217
  Transmission Date: 20230418
  Serious: Yes (Death, Hospitalization, Other)
  Sender: FDA-Public Use
  Company Number: PL-CELLTRION INC.-2023PL003184

PATIENT

DRUGS (11)
  1. RITUXIMAB [Suspect]
     Active Substance: RITUXIMAB
     Indication: Chronic lymphocytic leukaemia
     Dosage: 500 MG/M2, EVERY 28 DAY
     Route: 042
     Dates: start: 20221026
  2. RITUXIMAB [Suspect]
     Active Substance: RITUXIMAB
     Dosage: 375 MG/M2, EVERY 28 DAY
     Route: 042
     Dates: start: 20220728, end: 20221026
  3. BENDAMUSTINE [Suspect]
     Active Substance: BENDAMUSTINE
     Indication: Chronic lymphocytic leukaemia
     Dosage: 70 MG/M2
     Route: 042
     Dates: start: 20220728, end: 20221026
  4. PIRTOBRUTINIB [Suspect]
     Active Substance: PIRTOBRUTINIB
     Indication: Chronic lymphocytic leukaemia
     Dosage: 200 MG, EVERY 1 DAY
     Dates: start: 20221122
  5. FOSFOMYCIN [Concomitant]
     Active Substance: FOSFOMYCIN
     Dosage: UNK
     Dates: start: 20221105
  6. MESALAMINE [Concomitant]
     Active Substance: MESALAMINE
  7. BISEPTOL [Concomitant]
     Active Substance: SULFAMETHOXAZOLE\TRIMETHOPRIM
     Dosage: UNK
     Dates: start: 2018
  8. CILOZEK [Concomitant]
     Dosage: UNK
     Dates: start: 20161211
  9. GLUCOPHAGE [Concomitant]
     Active Substance: METFORMIN HYDROCHLORIDE
  10. Glibetic [Concomitant]
     Dosage: UNK
     Dates: start: 2020
  11. ACYCLOVIR [Concomitant]
     Active Substance: ACYCLOVIR
     Dosage: UNK
     Dates: start: 2018

REACTIONS (2)
  - Pneumonia [Fatal]
  - Escherichia urinary tract infection [Fatal]

NARRATIVE: CASE EVENT DATE: 20221220
